FAERS Safety Report 4479877-X (Version None)
Quarter: 2004Q4

REPORT INFORMATION
  Report Type: 
  Country: None (occurrence: None)
  Receive Date: 20041020
  Receipt Date: 20041012
  Transmission Date: 20050328
  Serious: Yes (Other)
  Sender: FDA-Public Use
  Company Number: FR-BRISTOL-MYERS SQUIBB COMPANY-12731956

PATIENT
  Sex: Male

DRUGS (2)
  1. APROVEL TABS [Suspect]
     Indication: HYPERTENSION
     Dosage: 1 TABLET DAILY (DOSAGE UNKNOWN)
     Route: 048
     Dates: start: 19980101
  2. TAHOR [Suspect]
     Indication: HYPERCHOLESTEROLAEMIA
     Route: 048
     Dates: start: 20030401

REACTIONS (1)
  - BLOOD CREATINE PHOSPHOKINASE INCREASED [None]
